FAERS Safety Report 17271808 (Version 1)
Quarter: 2020Q1

REPORT INFORMATION
  Report Type: Other
  Country: JP (occurrence: JP)
  Receive Date: 20200115
  Receipt Date: 20200115
  Transmission Date: 20200409
  Serious: Yes (Hospitalization)
  Sender: FDA-Public Use
  Company Number: JP-SUNRISE PHARMACEUTICAL, INC.-2079014

PATIENT
  Age: 77 Year
  Sex: Male

DRUGS (1)
  1. POLYETHYLENE GLYCOL 3350. [Suspect]
     Active Substance: POLYETHYLENE GLYCOL 3350
     Indication: BOWEL PREPARATION
     Route: 065

REACTIONS (2)
  - Crowned dens syndrome [Recovering/Resolving]
  - Chondrocalcinosis pyrophosphate [Recovering/Resolving]
